FAERS Safety Report 5400359-2 (Version None)
Quarter: 2007Q3

REPORT INFORMATION
  Report Type: 
  Country: None (occurrence: None)
  Receive Date: 20070730
  Receipt Date: 20070719
  Transmission Date: 20080115
  Serious: Yes (Life-Threatening, Hospitalization, Disabling)
  Sender: FDA-Public Use
  Company Number: B0452802A

PATIENT
  Age: 82 Year
  Sex: Female
  Weight: 56 kg

DRUGS (14)
  1. ARIXTRA [Suspect]
     Dosage: 7.5MG PER DAY
     Route: 058
     Dates: start: 20061222, end: 20061224
  2. INDAPAMIDE [Suspect]
     Dosage: 2.5MG PER DAY
     Route: 048
     Dates: end: 20061228
  3. LASIX [Suspect]
     Dosage: 20MG PER DAY
  4. ZOLPIDEM TARTRATE [Concomitant]
     Dates: end: 20061227
  5. TRIVASTAL [Concomitant]
     Indication: VERTIGO
     Dosage: 50MG PER DAY
     Route: 048
  6. LIORESAL [Concomitant]
     Indication: DRUG USE FOR UNKNOWN INDICATION
     Dates: end: 20061226
  7. FRACTAL [Concomitant]
     Dosage: 40MG PER DAY
     Route: 048
  8. MAXEPA [Concomitant]
     Indication: DRUG USE FOR UNKNOWN INDICATION
     Route: 065
     Dates: end: 20061226
  9. FUMAFER [Concomitant]
     Indication: IRON DEFICIENCY
     Dosage: 66MG TWICE PER DAY
     Route: 048
  10. VITAMINS B1 B6 [Concomitant]
     Dates: end: 20061226
  11. CELECTOL [Concomitant]
     Dosage: 200MG PER DAY
     Route: 048
  12. INDAPAMIDE [Concomitant]
     Dosage: 1.5MG PER DAY
     Route: 048
  13. ACETAMINOPHEN AND TRAMADOL HCL [Concomitant]
     Indication: ASTHMA
     Dosage: 3UNIT PER DAY
     Route: 048
  14. NEXIUM [Concomitant]
     Dosage: 20MG PER DAY
     Route: 048

REACTIONS (9)
  - ANAEMIA [None]
  - HAEMATOMA [None]
  - HYPOAESTHESIA [None]
  - HYPOKALAEMIA [None]
  - LEUKOCYTOSIS [None]
  - MOBILITY DECREASED [None]
  - NERVE COMPRESSION [None]
  - OVERDOSE [None]
  - PARALYSIS [None]
